FAERS Safety Report 4711655-6 (Version None)
Quarter: 2005Q3

REPORT INFORMATION
  Report Type: 
  Country: None (occurrence: None)
  Receive Date: 20050712
  Receipt Date: 20050614
  Transmission Date: 20060218
  Serious: Yes (Hospitalization, Other)
  Sender: FDA-Public Use
  Company Number: GB-BRISTOL-MYERS SQUIBB COMPANY-13005335

PATIENT
  Age: 34 Year
  Sex: Female

DRUGS (2)
  1. ABILIFY [Suspect]
     Indication: BIPOLAR DISORDER
     Dosage: DECREASED TO 7.5 MG/DAY
     Route: 048
     Dates: start: 20040801
  2. CLOZAPINE [Concomitant]
     Indication: BIPOLAR DISORDER
     Route: 048
     Dates: end: 20040801

REACTIONS (3)
  - CATATONIA [None]
  - MANIA [None]
  - PSYCHOTIC DISORDER [None]
